FAERS Safety Report 23320214 (Version 2)
Quarter: 2024Q3

REPORT INFORMATION
  Report Type: Report from Study
  Country: GB (occurrence: GB)
  Receive Date: 20231220
  Receipt Date: 20240807
  Transmission Date: 20241017
  Serious: Yes (Other)
  Sender: NOVARTIS
  Company Number: GB-002147023-NVSC2022GB113103

PATIENT
  Age: 54 Year
  Sex: Female

DRUGS (2)
  1. KISQALI [Suspect]
     Active Substance: RIBOCICLIB
     Indication: Breast cancer metastatic
     Dosage: UNK
     Route: 048
     Dates: start: 20220504
  2. KISQALI [Suspect]
     Active Substance: RIBOCICLIB
     Dosage: UNK
     Route: 065
     Dates: start: 202205

REACTIONS (12)
  - Electrocardiogram QT prolonged [Unknown]
  - Haematemesis [Unknown]
  - Sinus tachycardia [Unknown]
  - Paraesthesia [Unknown]
  - Illness [Unknown]
  - Abdominal discomfort [Unknown]
  - Dysphonia [Unknown]
  - Diarrhoea [Unknown]
  - Dyspepsia [Unknown]
  - Nausea [Unknown]
  - Fatigue [Unknown]
  - Lethargy [Unknown]

NARRATIVE: CASE EVENT DATE: 20220526
